FAERS Safety Report 24030446 (Version 1)
Quarter: 2024Q2

REPORT INFORMATION
  Report Type: Spontaneous
  Country: JP (occurrence: JP)
  Receive Date: 20240628
  Receipt Date: 20240628
  Transmission Date: 20240715
  Serious: Yes (Life-Threatening, Hospitalization)
  Sender: FDA-Public Use
  Company Number: JP-DSJP-DSJ-2024-129071

PATIENT
  Age: 8 Decade
  Sex: Female

DRUGS (2)
  1. EDOXABAN TOSYLATE [Suspect]
     Active Substance: EDOXABAN TOSYLATE
     Indication: Cerebral infarction
     Dosage: 30MG
     Route: 048
  2. UNSPECIFIED INGREDIENT [Concomitant]
     Active Substance: UNSPECIFIED INGREDIENT
     Indication: Lung adenocarcinoma stage IV
     Dosage: UNK
     Route: 065

REACTIONS (2)
  - Acute myocardial infarction [Unknown]
  - Thrombophlebitis migrans [Unknown]
